FAERS Safety Report 5353646-0 (Version None)
Quarter: 2007Q2

REPORT INFORMATION
  Report Type: 
  Country: None (occurrence: None)
  Receive Date: 20070612
  Receipt Date: 20070601
  Transmission Date: 20071010
  Serious: Yes (Death)
  Sender: FDA-Public Use
  Company Number: US-ROCHE-498020

PATIENT
  Age: 95 Year
  Sex: Male
  Weight: 59 kg

DRUGS (2)
  1. BONIVA [Suspect]
     Indication: OSTEOPOROSIS
     Route: 048
     Dates: start: 20060401, end: 20061017
  2. UNSPECIFIED MEDICATIONS [Concomitant]

REACTIONS (1)
  - PROSTATE CANCER METASTATIC [None]
